FAERS Safety Report 4887256-6 (Version None)
Quarter: 2005Q4

REPORT INFORMATION
  Report Type: 
  Country: None (occurrence: None)
  Receive Date: 20051221
  Receipt Date: 20051107
  Transmission Date: 20060501
  Serious: No
  Sender: FDA-Public Use
  Company Number: US-YAMANOUCHI-YPA20050579

PATIENT
  Age: 80 Year
  Sex: Female

DRUGS (5)
  1. VESICARE [Suspect]
     Indication: HYPERTONIC BLADDER
  2. MICARDIS [Suspect]
  3. CARDENE [Concomitant]
  4. LOPRESSOR [Concomitant]
  5. DETROL [Concomitant]

REACTIONS (2)
  - RASH GENERALISED [None]
  - STOMACH DISCOMFORT [None]
